FAERS Safety Report 6222929-4 (Version None)
Quarter: 2009Q2

REPORT INFORMATION
  Report Type: 
  Country: None (occurrence: None)
  Receive Date: 20090611
  Receipt Date: 20090602
  Transmission Date: 20091009
  Serious: Yes (Hospitalization)
  Sender: FDA-Public Use
  Company Number: FR-AVENTIS-200912067FR

PATIENT
  Age: 67 Year
  Sex: Female

DRUGS (1)
  1. CLAFORAN [Suspect]

REACTIONS (2)
  - DISORIENTATION [None]
  - HALLUCINATION [None]
